FAERS Safety Report 5254872-1 (Version None)
Quarter: 2007Q1

REPORT INFORMATION
  Report Type: 
  Country: None (occurrence: None)
  Receive Date: 20070305
  Receipt Date: 20070226
  Transmission Date: 20070707
  Serious: Yes (Hospitalization)
  Sender: FDA-Public Use
  Company Number: DE-BRISTOL-MYERS SQUIBB COMPANY-13639182

PATIENT
  Age: 67 Year
  Sex: Female
  Weight: 84 kg

DRUGS (9)
  1. PACLITAXEL [Suspect]
     Indication: BREAST CANCER
     Route: 042
     Dates: start: 20070103, end: 20070117
  2. EPIRUBICIN [Suspect]
     Indication: BREAST CANCER
     Route: 042
     Dates: start: 20061121, end: 20061220
  3. FORTECORTIN [Concomitant]
     Route: 042
     Dates: start: 20070103, end: 20070117
  4. TAVEGIL [Concomitant]
     Route: 042
     Dates: start: 20070103, end: 20070117
  5. ZANTIC [Concomitant]
     Route: 042
     Dates: start: 20070103, end: 20070117
  6. ARANESP [Concomitant]
     Route: 058
     Dates: start: 20070103, end: 20070117
  7. FERRO SANOL [Concomitant]
     Route: 048
     Dates: start: 20061121
  8. MARCUMAR [Concomitant]
     Route: 048
     Dates: start: 20070131
  9. AVELOX [Concomitant]
     Route: 048
     Dates: start: 20070208, end: 20070210

REACTIONS (3)
  - COUGH [None]
  - PYREXIA [None]
  - VENOUS THROMBOSIS [None]
